FAERS Safety Report 6626126-X (Version None)
Quarter: 2010Q1

REPORT INFORMATION
  Report Type: 
  Country: None (occurrence: None)
  Receive Date: 20100310
  Receipt Date: 20100303
  Transmission Date: 20100710
  Serious: Yes (Hospitalization)
  Sender: FDA-Public Use
  Company Number: B0638742A

PATIENT
  Sex: Female

DRUGS (4)
  1. AUGMENTIN [Suspect]
     Dosage: 1G PER DAY
     Route: 048
     Dates: start: 20080515, end: 20080515
  2. METFORMIN HYDROCHLORIDE [Concomitant]
  3. GLICONORM [Concomitant]
  4. DOXAZOSIN MESYLATE [Concomitant]

REACTIONS (3)
  - FACE OEDEMA [None]
  - GENERALISED ERYTHEMA [None]
  - PRURITUS GENERALISED [None]
